FAERS Safety Report 5122664-X (Version None)
Quarter: 2006Q4

REPORT INFORMATION
  Report Type: 
  Country: None (occurrence: None)
  Receive Date: 20061009
  Receipt Date: 20060925
  Transmission Date: 20070319
  Serious: Yes (Other)
  Sender: FDA-Public Use
  Company Number: PHEH2006US12170

PATIENT
  Age: 73 Year
  Sex: Female

DRUGS (4)
  1. EXELON [Suspect]
     Indication: DEMENTIA
     Dosage: 3 MG, BID
     Route: 048
     Dates: end: 20060903
  2. CARDIAC THERAPY [Concomitant]
  3. ENABLEX [Concomitant]
  4. PLAVIX [Concomitant]

REACTIONS (2)
  - CORONARY ARTERIAL STENT INSERTION [None]
  - SYNCOPE [None]
